FAERS Safety Report 26108195 (Version 1)
Quarter: 2025Q4

REPORT INFORMATION
  Report Type: Report from Study
  Country: US (occurrence: US)
  Receive Date: 20251201
  Receipt Date: 20251201
  Transmission Date: 20260118
  Serious: Yes (Death)
  Sender: OTSUKA
  Company Number: US-MMM-Otsuka-YD164M3U

PATIENT
  Sex: Female

DRUGS (2)
  1. BREXPIPRAZOLE [Suspect]
     Active Substance: BREXPIPRAZOLE
     Indication: Dementia
     Dosage: 2 MG
     Route: 065
  2. BREXPIPRAZOLE [Suspect]
     Active Substance: BREXPIPRAZOLE
     Indication: Agitation

REACTIONS (3)
  - Death [Fatal]
  - Product use in unapproved indication [Unknown]
  - Therapy interrupted [Unknown]

NARRATIVE: CASE EVENT DATE: 20250101
